FAERS Safety Report 20202883 (Version 12)
Quarter: 2023Q4

REPORT INFORMATION
  Report Type: Spontaneous
  Country: CA (occurrence: CA)
  Receive Date: 20211218
  Receipt Date: 20231114
  Transmission Date: 20240110
  Serious: Yes (Other)
  Sender: FDA-Public Use
  Company Number: CA-CELLTRION INC.-2021CA017304

PATIENT

DRUGS (16)
  1. INFLECTRA [Suspect]
     Active Substance: INFLIXIMAB-DYYB
     Indication: Rheumatoid arthritis
     Dosage: 200 MG,WEEK 0, 2 AND 6, THEN EVERY 8 WEEKS
     Route: 042
     Dates: start: 20200608, end: 20210106
  2. INFLECTRA [Suspect]
     Active Substance: INFLIXIMAB-DYYB
     Dosage: 300 MG, EVERY 4-6 WEEKS FREQUENCY
     Route: 042
     Dates: start: 20210217
  3. INFLECTRA [Suspect]
     Active Substance: INFLIXIMAB-DYYB
     Dosage: 300 MG,EVERY 4 TO 6 WEEKS
     Route: 042
     Dates: start: 2021, end: 2021
  4. INFLECTRA [Suspect]
     Active Substance: INFLIXIMAB-DYYB
     Dosage: 300 MG, EVERY 4-6 WEEKS FREQUENCY
     Route: 042
     Dates: start: 20211021
  5. INFLECTRA [Suspect]
     Active Substance: INFLIXIMAB-DYYB
     Dosage: 600 MG, 4-6 WEEKS FREQUENCY (PATIENT IS PRESCRIBED 5 MG/KG OR 300 MG)
     Route: 042
     Dates: start: 20211117
  6. INFLECTRA [Suspect]
     Active Substance: INFLIXIMAB-DYYB
     Dosage: 300 MG, EVERY 4-6 WEEKS FREQUENCY
     Route: 042
  7. INFLECTRA [Suspect]
     Active Substance: INFLIXIMAB-DYYB
     Dosage: 200 MG, WEEK 0, 2 AND 6, THEN EVERY 8 WEEKS
     Route: 042
     Dates: start: 20221207, end: 20230510
  8. INFLECTRA [Suspect]
     Active Substance: INFLIXIMAB-DYYB
     Dosage: 200 MG, WEEK 0, 2 AND 6, THEN EVERY 8 WEEKS
     Route: 042
     Dates: start: 20230510
  9. INFLECTRA [Suspect]
     Active Substance: INFLIXIMAB-DYYB
     Dosage: 550 MG,EVERY 4 TO 6 WEEKS
     Route: 042
     Dates: start: 20230607
  10. INFLECTRA [Suspect]
     Active Substance: INFLIXIMAB-DYYB
     Dosage: 550 MG AFTER 6 WEEKS
     Route: 042
     Dates: start: 20230725
  11. INFLECTRA [Suspect]
     Active Substance: INFLIXIMAB-DYYB
     Dosage: 550 MG, EVERY 4 TO 6 WEEKS
     Route: 042
     Dates: start: 20230825
  12. LINACLOTIDE [Concomitant]
     Active Substance: LINACLOTIDE
     Dosage: UNK
  13. HYDROMORPHONE [Concomitant]
     Active Substance: HYDROMORPHONE
     Dosage: UNK
  14. NAPROXEN [Concomitant]
     Active Substance: NAPROXEN
     Dosage: UNK
  15. PREVACID [Concomitant]
     Active Substance: LANSOPRAZOLE
     Dosage: UNK
  16. TYLENOL WITH CODEINE [Concomitant]
     Active Substance: ACETAMINOPHEN\CODEINE PHOSPHATE
     Dosage: UNK

REACTIONS (21)
  - Arthropathy [Unknown]
  - Cartilage injury [Unknown]
  - Hip surgery [Unknown]
  - Jaw operation [Recovered/Resolved]
  - Hysterectomy [Unknown]
  - Oral infection [Unknown]
  - Osteonecrosis of jaw [Unknown]
  - Grip strength decreased [Unknown]
  - Blood pressure diastolic decreased [Unknown]
  - Chest pain [Unknown]
  - Palpitations [Unknown]
  - Dyspnoea [Unknown]
  - Arthralgia [Unknown]
  - Gingival pain [Recovering/Resolving]
  - Gingival erythema [Recovering/Resolving]
  - Procedural pain [Not Recovered/Not Resolved]
  - Stomatitis [Unknown]
  - Toothache [Unknown]
  - Drug ineffective [Unknown]
  - Off label use [Unknown]
  - Incorrect dose administered [Unknown]

NARRATIVE: CASE EVENT DATE: 20210217
